FAERS Safety Report 9059222 (Version 2)
Quarter: 2013Q1

REPORT INFORMATION
  Report Type: Spontaneous
  Country: JP (occurrence: JP)
  Receive Date: 20130211
  Receipt Date: 20130225
  Transmission Date: 20140127
  Serious: Yes (Life-Threatening, Hospitalization)
  Sender: FDA-Public Use
  Company Number: JP-PFIZER INC-2013049425

PATIENT
  Age: 47 Year
  Sex: Female
  Weight: 58 kg

DRUGS (3)
  1. AZULFIDINE EN [Suspect]
     Indication: ANKYLOSING SPONDYLITIS
     Dosage: 500 MG, 1X/DAY
     Route: 048
     Dates: start: 20121207, end: 20121227
  2. AZULFIDINE EN [Suspect]
     Dosage: 500 MG, 2X/DAY
     Route: 048
     Dates: start: 20121228, end: 20121231
  3. CELECOX [Suspect]
     Indication: ANKYLOSING SPONDYLITIS
     Dosage: 200 MG, 2X/DAY
     Route: 048
     Dates: start: 20121130, end: 20130111

REACTIONS (1)
  - Drug reaction with eosinophilia and systemic symptoms [Recovering/Resolving]
